FAERS Safety Report 9413428 (Version 2)
Quarter: 2013Q3

REPORT INFORMATION
  Report Type: Spontaneous
  Country: FR (occurrence: None)
  Receive Date: 20130717
  Receipt Date: 20130730
  Transmission Date: 20140515
  Serious: Yes (Hospitalization)
  Sender: FDA-Public Use
  Company Number: 1790893

PATIENT
  Age: 71 Year
  Sex: Male

DRUGS (11)
  1. CARBOPLATIN [Suspect]
     Indication: SMALL CELL LUNG CANCER
     Dosage: 3 MONTHS, 1 CYCLICAL, INTRAVENOUS DRIP
     Route: 041
  2. CISPLATINE [Suspect]
     Indication: SMALL CELL LUNG CANCER
     Dosage: 1 YEAR, 1 CYCLICAL, INTRAVENOUS DRIP
     Route: 041
  3. ETOPOSIDE [Suspect]
     Indication: SMALL CELL LUNG CANCER
     Dosage: 1 YEAR, 1 CYCLICAL, INTRAVENOUS DRIP
     Route: 041
  4. IRINOTECAN [Suspect]
     Indication: SMALL CELL LUNG CANCER
     Dosage: 3 MONTHS, 1 CYCLICAL, INTRAVENOUS DRIP
     Route: 041
  5. CYCLOPHOSPHAMIDE [Suspect]
     Indication: SMALL CELL LUNG CANCER
     Dosage: 5 ADM D1=D21, 1 CYCLICAL, INTRAVENOUS DRIP
     Route: 041
     Dates: end: 20130131
  6. DOXORUBICIN [Suspect]
     Indication: SMALL CELL LUNG CANCER
     Dosage: 5 ADM D1=D21, 1 CYCLICAL
     Route: 041
     Dates: end: 20130131
  7. RAMIPRIL [Concomitant]
  8. LYSINE ACETHLSALICYLIC [Concomitant]
  9. ATORVASTATINE [Concomitant]
  10. ESOMEPRAZOLE [Concomitant]
  11. METFORMINE [Concomitant]

REACTIONS (9)
  - Rectal cancer [None]
  - Small cell lung cancer [None]
  - Malignant neoplasm progression [None]
  - Hepatic lesion [None]
  - No therapeutic response [None]
  - Progressive multifocal leukoencephalopathy [None]
  - Hemianopia [None]
  - Cerebellar syndrome [None]
  - Metastases to meninges [None]
